FAERS Safety Report 10924081 (Version 2)
Quarter: 2015Q2

REPORT INFORMATION
  Report Type: Spontaneous
  Country: US (occurrence: US)
  Receive Date: 20150318
  Receipt Date: 20150526
  Transmission Date: 20150821
  Serious: No
  Sender: FDA-Public Use
  Company Number: US-JNJFOC-20150202089

PATIENT
  Age: 71 Year
  Sex: Female
  Weight: 139.71 kg

DRUGS (9)
  1. FOLIC ACID. [Concomitant]
     Active Substance: FOLIC ACID
     Route: 065
  2. LASIX [Concomitant]
     Active Substance: FUROSEMIDE
     Route: 048
  3. LOSARTAN [Concomitant]
     Active Substance: LOSARTAN
     Indication: MINERAL SUPPLEMENTATION
     Route: 048
  4. HUMALOG [Concomitant]
     Active Substance: INSULIN LISPRO
     Route: 065
  5. XOLAIR [Concomitant]
     Active Substance: OMALIZUMAB
     Indication: BLOOD IMMUNOGLOBULIN G INCREASED
     Dosage: 3 INJECTIONS EVERY 2 WEEKS
     Route: 065
  6. HUMULIN INSULIN [Concomitant]
     Active Substance: INSULIN HUMAN
     Route: 065
  7. SINGULAIR [Concomitant]
     Active Substance: MONTELUKAST SODIUM
     Indication: MULTIPLE ALLERGIES
     Route: 065
  8. GABAPENTIN. [Concomitant]
     Active Substance: GABAPENTIN
     Route: 048
  9. ITRACONAZOLE. [Suspect]
     Active Substance: ITRACONAZOLE
     Indication: ASPERGILLUS INFECTION
     Route: 048
     Dates: start: 201410, end: 20150126

REACTIONS (30)
  - Arthralgia [Not Recovered/Not Resolved]
  - Flatulence [Not Recovered/Not Resolved]
  - Dizziness [Not Recovered/Not Resolved]
  - Nervousness [Not Recovered/Not Resolved]
  - Pain of skin [Not Recovered/Not Resolved]
  - Dyspnoea [Not Recovered/Not Resolved]
  - Peripheral swelling [Not Recovered/Not Resolved]
  - Oedema peripheral [Not Recovered/Not Resolved]
  - Abdominal pain [Not Recovered/Not Resolved]
  - Eyelid oedema [Not Recovered/Not Resolved]
  - Malaise [Not Recovered/Not Resolved]
  - Fatigue [Not Recovered/Not Resolved]
  - Petechiae [Not Recovered/Not Resolved]
  - Feeling cold [Not Recovered/Not Resolved]
  - Myalgia [Not Recovered/Not Resolved]
  - Restlessness [Not Recovered/Not Resolved]
  - Purpura [Not Recovered/Not Resolved]
  - Muscular weakness [Not Recovered/Not Resolved]
  - Chills [Not Recovered/Not Resolved]
  - Flank pain [Not Recovered/Not Resolved]
  - Disturbance in attention [Unknown]
  - Movement disorder [Not Recovered/Not Resolved]
  - Nausea [Not Recovered/Not Resolved]
  - Vomiting [Not Recovered/Not Resolved]
  - Thirst [Not Recovered/Not Resolved]
  - Decreased appetite [Not Recovered/Not Resolved]
  - Dry mouth [Not Recovered/Not Resolved]
  - Skin fissures [Not Recovered/Not Resolved]
  - Hypersomnia [Not Recovered/Not Resolved]
  - Balance disorder [Not Recovered/Not Resolved]

NARRATIVE: CASE EVENT DATE: 201501
